FAERS Safety Report 6454794-4 (Version None)
Quarter: 2009Q4

REPORT INFORMATION
  Report Type: 
  Country: None (occurrence: None)
  Receive Date: 20091118
  Receipt Date: 20091106
  Transmission Date: 20100525
  Serious: Yes (Other)
  Sender: FDA-Public Use
  Company Number: 1000010076

PATIENT
  Age: 89 Year
  Sex: Female

DRUGS (2)
  1. MEMANTINE HCL [Suspect]
  2. DONEPEZIL HYDROCHLORIDE [Concomitant]

REACTIONS (1)
  - EPILEPSY [None]
